FAERS Safety Report 7652256-X (Version None)
Quarter: 2011Q3

REPORT INFORMATION
  Report Type: 
  Country: None (occurrence: None)
  Receive Date: 20110728
  Receipt Date: 20110715
  Transmission Date: 20111222
  Serious: No
  Sender: FDA-Public Use
  Company Number: TPA2011A03930

PATIENT
  Sex: Female

DRUGS (5)
  1. ACTOPLUS MET [Suspect]
     Indication: TYPE 2 DIABETES MELLITUS
     Dosage: 15 MG/ 500 MG BID
     Dates: start: 20060101, end: 20110713
  2. ^FLUCOSAMINE^ (ALLERGY MEDICATION) [Concomitant]
  3. SINGULAIR [Concomitant]
  4. LISINOPRIL [Concomitant]
  5. ACTOS [Suspect]
     Indication: TYPE 2 DIABETES MELLITUS
     Dates: start: 20020101, end: 20060101

REACTIONS (2)
  - TREATMENT NONCOMPLIANCE [None]
  - BLADDER CANCER [None]
